FAERS Safety Report 17884752 (Version 1)
Quarter: 2020Q2

REPORT INFORMATION
  Report Type: Spontaneous
  Country: US (occurrence: US)
  Receive Date: 20200610
  Receipt Date: 20200610
  Transmission Date: 20200714
  Serious: Yes (Death, Hospitalization)
  Sender: FDA-Public Use
  Company Number: None

PATIENT
  Age: 4 Year
  Sex: Male

DRUGS (1)
  1. TRACLEER [Suspect]
     Active Substance: BOSENTAN
     Indication: PULMONARY ARTERIAL HYPERTENSION
     Route: 048
     Dates: start: 20190625, end: 20200604

REACTIONS (4)
  - Pupil fixed [None]
  - Aneurysm ruptured [None]
  - Hypertension [None]
  - Brain death [None]

NARRATIVE: CASE EVENT DATE: 20200604
